FAERS Safety Report 5267020-9 (Version None)
Quarter: 2007Q1

REPORT INFORMATION
  Report Type: 
  Country: None (occurrence: None)
  Receive Date: 20070312
  Receipt Date: 20070301
  Transmission Date: 20070707
  Serious: Yes (Hospitalization)
  Sender: FDA-Public Use
  Company Number: APP200700029

PATIENT
  Age: 63 Year
  Sex: Female

DRUGS (3)
  1. CISPLATIN [Suspect]
     Indication: CHEMOTHERAPY
     Dosage: (85 MG/M2, ONCE ON POSTOPERATIVE DAY 13) INTRAPERITONEAL
     Route: 033
  2. DOCETAXEL (DOCETAXEL) [Suspect]
     Indication: CHEMOTHERAPY
     Dosage: (60 MG/M2, ONCE ON POSTOPERATIVE DAY 13), INTRAVENOUS
     Route: 042
  3. PACLITAXEL [Suspect]
     Indication: CHEMOTHERAPY
     Dosage: 60 MG/M2 (60 MG/M2, FIRST DOSE ON POSTOPERATIVE DAY 21), INTRAVENOUS
     Route: 033

REACTIONS (2)
  - VAGINAL DISORDER [None]
  - WOUND EVISCERATION [None]
